FAERS Safety Report 6800202-0 (Version None)
Quarter: 2010Q2

REPORT INFORMATION
  Report Type: 
  Country: None (occurrence: None)
  Receive Date: 20100616
  Receipt Date: 20100525
  Transmission Date: 20101027
  Serious: Yes (Other)
  Sender: FDA-Public Use
  Company Number: 2010SP032855

PATIENT
  Sex: Female

DRUGS (1)
  1. PEGINTERFERON ALFA-2B W/RIBAVIRIN (PEGYLATED INTERFERON ALFA-2B W/RIBA [Suspect]
     Indication: HEPATITIS C

REACTIONS (1)
  - PARKINSONISM [None]
